FAERS Safety Report 4956535-6 (Version None)
Quarter: 2006Q1

REPORT INFORMATION
  Report Type: 
  Country: None (occurrence: None)
  Receive Date: 20060329
  Receipt Date: 20051007
  Transmission Date: 20060701
  Serious: Yes (Hospitalization, Disabling, Other)
  Sender: FDA-Public Use
  Company Number: US-MERCK-0510USA06013

PATIENT
  Age: 57 Year
  Sex: Male
  Weight: 98 kg

DRUGS (2)
  1. VIOXX [Suspect]
     Indication: ARTHRITIS
     Route: 048
     Dates: start: 19990524, end: 20041024
  2. VIOXX [Suspect]
     Indication: PAIN MANAGEMENT
     Route: 048
     Dates: start: 19990524, end: 20041024

REACTIONS (9)
  - ANXIETY [None]
  - ARTERIAL OCCLUSIVE DISEASE [None]
  - ARTHROPATHY [None]
  - ATRIAL FIBRILLATION [None]
  - CEREBROVASCULAR ACCIDENT [None]
  - CHEST PAIN [None]
  - HEART RATE INCREASED [None]
  - MYOCARDIAL INFARCTION [None]
  - PROSTATIC DISORDER [None]
